FAERS Safety Report 5490548-3 (Version None)
Quarter: 2007Q4

REPORT INFORMATION
  Report Type: 
  Country: None (occurrence: None)
  Receive Date: 20071019
  Receipt Date: 20071015
  Transmission Date: 20080405
  Serious: Yes (Hospitalization)
  Sender: FDA-Public Use
  Company Number: CA-BRISTOL-MYERS SQUIBB COMPANY-13942404

PATIENT
  Age: 62 Year
  Sex: Male

DRUGS (3)
  1. METHOTREXATE [Suspect]
     Indication: RHEUMATOID ARTHRITIS
     Dosage: INITAILY PT RECEIVED ORAL METHOTREXATE,LATER CHANGED TO IM 17.5 TO 20MG/WEEK DUE LACK OFRESPONSE.
     Route: 030
  2. ETANERCEPT [Suspect]
  3. PREDNISONE [Suspect]

REACTIONS (4)
  - ABDOMINAL PAIN [None]
  - MENINGITIS ASEPTIC [None]
  - NO THERAPEUTIC RESPONSE [None]
  - TENOSYNOVITIS [None]
